FAERS Safety Report 8850349 (Version 1)
Quarter: 2012Q4

REPORT INFORMATION
  Report Type: 
  Country: NL (occurrence: NL)
  Receive Date: 20121019
  Receipt Date: 20121019
  Transmission Date: 20130627
  Serious: Yes (Other)
  Sender: FDA-Public Use
  Company Number: NL-ALLERGAN-1214110US

PATIENT
  Age: 24 Year
  Sex: Male

DRUGS (4)
  1. TROSPIUM CHLORIDE [Suspect]
     Indication: BLADDER SPASM
     Dosage: 30 mg, tid
     Route: 048
  2. UNSPECIFIED INGREDIENT [Suspect]
     Indication: DRUG USE FOR UNKNOWN INDICATION
     Dosage: 150 mg, UNK
     Route: 048
  3. BACLOFEN [Suspect]
     Indication: SPASTICITY
     Dosage: 10 mg, tid
  4. OXYBUTYNIN HYDROCHLORIDE, S- [Suspect]
     Indication: BLADDER SPASM
     Dosage: 5 mg, tid

REACTIONS (12)
  - Coma [Recovered/Resolved]
  - Respiratory failure [Recovered/Resolved]
  - Loss of consciousness [Recovered/Resolved]
  - Hyperthermia [Recovered/Resolved]
  - Cyanosis [Recovered/Resolved]
  - Mydriasis [Recovered/Resolved]
  - Tachypnoea [Recovered/Resolved]
  - Dry skin [Recovered/Resolved]
  - Peripheral coldness [Recovered/Resolved]
  - Impaired gastric emptying [Recovered/Resolved]
  - Infrequent bowel movements [Recovered/Resolved]
  - Hepatic enzyme increased [Unknown]
